FAERS Safety Report 5403991-5 (Version None)
Quarter: 2007Q3

REPORT INFORMATION
  Report Type: 
  Country: None (occurrence: None)
  Receive Date: 20070802
  Receipt Date: 20070727
  Transmission Date: 20080115
  Serious: Yes (Hospitalization)
  Sender: FDA-Public Use
  Company Number: B0480876A

PATIENT
  Age: 58 Year
  Sex: Female
  Weight: 37 kg

DRUGS (8)
  1. PAXIL [Suspect]
     Indication: DEPRESSION
     Route: 048
     Dates: start: 20070623, end: 20070625
  2. UNKNOWN MEDICATION [Concomitant]
     Indication: DIABETES MELLITUS
     Dosage: 25MG THREE TIMES PER DAY
     Route: 048
     Dates: start: 20070329
  3. CHINESE MEDICINE [Concomitant]
     Dosage: 2.5MG THREE TIMES PER DAY
     Route: 048
     Dates: end: 20070625
  4. MINOCYCLINE HCL [Concomitant]
     Indication: PNEUMONIA
     Dosage: 100MG TWICE PER DAY
     Route: 048
     Dates: start: 20070615, end: 20070625
  5. MEPTIN [Concomitant]
     Indication: PNEUMONIA
     Dosage: 25MG TWICE PER DAY
     Route: 048
     Dates: start: 20070619, end: 20070625
  6. MUCOSOLVAN [Concomitant]
     Indication: PNEUMONIA
     Dosage: 15MG TWICE PER DAY
     Route: 048
     Dates: start: 20070615, end: 20070625
  7. NOVOLIN R [Concomitant]
     Indication: DIABETES MELLITUS
     Route: 058
  8. DOGMATYL [Concomitant]
     Dosage: 1TAB PER DAY
     Route: 048
     Dates: start: 20070623, end: 20070625

REACTIONS (7)
  - BLOOD CALCIUM DECREASED [None]
  - BLOOD CHLORIDE DECREASED [None]
  - BLOOD CORTISOL INCREASED [None]
  - BLOOD OSMOLARITY DECREASED [None]
  - BLOOD PHOSPHORUS DECREASED [None]
  - BLOOD SODIUM DECREASED [None]
  - INAPPROPRIATE ANTIDIURETIC HORMONE SECRETION [None]
